FAERS Safety Report 18269828 (Version 2)
Quarter: 2020Q3

REPORT INFORMATION
  Report Type: Spontaneous
  Country: US (occurrence: US)
  Receive Date: 20200915
  Receipt Date: 20200925
  Transmission Date: 20201103
  Serious: No
  Sender: FDA-Public Use
  Company Number: US-IGSA-BIG0011086

PATIENT
  Age: 52 Year
  Sex: Female
  Weight: 67 kg

DRUGS (7)
  1. GAMUNEX?C [Suspect]
     Active Substance: HUMAN IMMUNOGLOBULIN G
     Dosage: 5 GRAM, UNKNOWN
     Route: 042
     Dates: start: 20200812
  2. GAMUNEX?C [Suspect]
     Active Substance: HUMAN IMMUNOGLOBULIN G
     Indication: DERMATOMYOSITIS
     Dosage: 60 GRAM, Q.M.T.
     Route: 042
     Dates: start: 20200812, end: 20200812
  3. GAMUNEX?C [Suspect]
     Active Substance: HUMAN IMMUNOGLOBULIN G
     Dosage: 65 GRAM, Q.M.T.
     Route: 042
     Dates: start: 20200813, end: 20200814
  4. ACETAMINOPHEN. [Concomitant]
     Active Substance: ACETAMINOPHEN
     Indication: PREMEDICATION
     Dosage: 650 MILLIGRAM
     Route: 048
     Dates: start: 20200812
  5. DIPHENHYDRAMINE. [Concomitant]
     Active Substance: DIPHENHYDRAMINE
     Indication: PREMEDICATION
     Dosage: 50 MILLIGRAM
     Route: 048
     Dates: start: 20200812
  6. ATENOLOL. [Concomitant]
     Active Substance: ATENOLOL
     Indication: ARRHYTHMIA
  7. NORMAL SALINE [Concomitant]
     Active Substance: SODIUM CHLORIDE
     Indication: PREMEDICATION
     Dosage: 500 MILLILITER
     Dates: start: 20200812

REACTIONS (5)
  - Lip swelling [Recovered/Resolved]
  - Back pain [Recovered/Resolved]
  - Spinal pain [Recovered/Resolved]
  - Infusion related reaction [Recovered/Resolved]
  - Blood pressure increased [Recovered/Resolved]

NARRATIVE: CASE EVENT DATE: 20200812
